FAERS Safety Report 10675031 (Version 1)
Quarter: 2014Q4

REPORT INFORMATION
  Report Type: Spontaneous
  Country: US (occurrence: US)
  Receive Date: 20141224
  Receipt Date: 20141224
  Transmission Date: 20150529
  Serious: Yes (Hospitalization)
  Sender: FDA-Public Use
  Company Number: US-BRISTOL-MYERS SQUIBB COMPANY-BMS-2014-003424

PATIENT
  Sex: Female
  Weight: 60.77 kg

DRUGS (19)
  1. INVOKANA [Concomitant]
     Active Substance: CANAGLIFLOZIN
  2. SIMVASTATIN. [Concomitant]
     Active Substance: SIMVASTATIN
  3. OMEPRAZOLE. [Concomitant]
     Active Substance: OMEPRAZOLE
  4. ASPIRIN                            /00002701/ [Concomitant]
     Active Substance: ASPIRIN
  5. TORSEMIDE. [Concomitant]
     Active Substance: TORSEMIDE
  6. CARVEDILOL. [Concomitant]
     Active Substance: CARVEDILOL
  7. CITALOPRAM HYDROBROMIDE. [Concomitant]
     Active Substance: CITALOPRAM HYDROBROMIDE
  8. OXYGEN. [Concomitant]
     Active Substance: OXYGEN
  9. DIGOXIN. [Concomitant]
     Active Substance: DIGOXIN
  10. TEMAZEPAM. [Concomitant]
     Active Substance: TEMAZEPAM
  11. REVATIO [Concomitant]
     Active Substance: SILDENAFIL CITRATE
  12. COUMADIN [Suspect]
     Active Substance: WARFARIN SODIUM
     Indication: PRODUCT USED FOR UNKNOWN INDICATION
     Dosage: 1 DF, QD
     Route: 065
  13. ALLOPURINOL. [Concomitant]
     Active Substance: ALLOPURINOL
  14. JANUVIA [Concomitant]
     Active Substance: SITAGLIPTIN PHOSPHATE
  15. IFEREX [Concomitant]
  16. METFORMIN [Concomitant]
     Active Substance: METFORMIN HYDROCHLORIDE
  17. GLYBURIDE. [Concomitant]
     Active Substance: GLYBURIDE
  18. OPSUMIT [Concomitant]
     Active Substance: MACITENTAN
  19. MAGNESIUM OXIDE. [Concomitant]
     Active Substance: MAGNESIUM OXIDE

REACTIONS (1)
  - Lower gastrointestinal haemorrhage [Unknown]
